FAERS Safety Report 4296527-6 (Version None)
Quarter: 2004Q1

REPORT INFORMATION
  Report Type: 
  Country: None (occurrence: None)
  Receive Date: 20040126
  Receipt Date: 20030821
  Transmission Date: 20041129
  Serious: No
  Sender: FDA-Public Use
  Company Number: USA030844989

PATIENT
  Age: 4 Year
  Sex: Male
  Weight: 18 kg

DRUGS (1)
  1. STRATTERA [Suspect]
     Indication: ATTENTION DEFICIT/HYPERACTIVITY DISORDER
     Dosage: 18 MG/IN THE MORNING
     Dates: start: 20030818

REACTIONS (2)
  - DECREASED APPETITE [None]
  - DYSGEUSIA [None]
